FAERS Safety Report 4929987-5 (Version None)
Quarter: 2006Q1

REPORT INFORMATION
  Report Type: 
  Country: None (occurrence: None)
  Receive Date: 20060302
  Receipt Date: 20060217
  Transmission Date: 20060701
  Serious: Yes (Other)
  Sender: FDA-Public Use
  Company Number: PHNU2006DE01030

PATIENT
  Sex: Female

DRUGS (1)
  1. COMBIPATCH [Suspect]

REACTIONS (3)
  - OEDEMA MUCOSAL [None]
  - UTERINE DILATION AND CURETTAGE [None]
  - UTERINE POLYP [None]
